FAERS Safety Report 6371966-8 (Version None)
Quarter: 2009Q3

REPORT INFORMATION
  Report Type: 
  Country: None (occurrence: None)
  Receive Date: 20090917
  Receipt Date: 20090904
  Transmission Date: 20100115
  Serious: Yes (Other)
  Sender: FDA-Public Use
  Company Number: ADR19392009

PATIENT
  Age: 25 Year
  Sex: Female

DRUGS (2)
  1. SALBUTAMOL (MFR: UNKNOWN) [Suspect]
     Indication: ASTHMA
     Dosage: INHALATION USE
     Route: 055
  2. SERETIDE [Concomitant]

REACTIONS (3)
  - ASTHMA [None]
  - CONDITION AGGRAVATED [None]
  - THERAPY REGIMEN CHANGED [None]
